FAERS Safety Report 14233603 (Version 1)
Quarter: 2017Q4

REPORT INFORMATION
  Report Type: Spontaneous
  Country: JP (occurrence: JP)
  Receive Date: 20171128
  Receipt Date: 20171128
  Transmission Date: 20180321
  Serious: Yes (Other)
  Sender: FDA-Public Use
  Company Number: JP-CELGENEUS-JPN-20171106103

PATIENT
  Sex: Male

DRUGS (9)
  1. GEMCITABINE HYDROCHLORIDE. [Concomitant]
     Active Substance: GEMCITABINE HYDROCHLORIDE
     Indication: PANCREATIC CARCINOMA RECURRENT
     Dosage: 600 MILLIGRAM
     Route: 065
  2. GEMCITABINE HYDROCHLORIDE. [Concomitant]
     Active Substance: GEMCITABINE HYDROCHLORIDE
     Dosage: 400 MILLIGRAM
     Route: 065
  3. OTERACIL POTASSIUM [Concomitant]
     Active Substance: OTERACIL POTASSIUM
     Indication: PANCREATIC CARCINOMA RECURRENT
     Route: 048
  4. ABRAXANE [Suspect]
     Active Substance: PACLITAXEL
     Indication: PANCREATIC CARCINOMA RECURRENT
     Dosage: 125 MILLIGRAM
     Route: 041
  5. TEGAFUR [Concomitant]
     Active Substance: TEGAFUR
     Indication: PANCREATIC CARCINOMA RECURRENT
     Route: 048
  6. ABRAXANE [Suspect]
     Active Substance: PACLITAXEL
     Dosage: 100 MILLIGRAM
     Route: 041
     Dates: start: 201609
  7. GEMCITABINE HYDROCHLORIDE. [Concomitant]
     Active Substance: GEMCITABINE HYDROCHLORIDE
     Dosage: 800 MILLIGRAM
     Route: 065
     Dates: start: 201609
  8. GEMCITABINE HYDROCHLORIDE. [Concomitant]
     Active Substance: GEMCITABINE HYDROCHLORIDE
     Dosage: 1000 MILLIGRAM
     Route: 065
  9. GIMERACIL [Concomitant]
     Active Substance: GIMERACIL
     Indication: PANCREATIC CARCINOMA RECURRENT
     Route: 048

REACTIONS (2)
  - Pancreatic carcinoma metastatic [Recovered/Resolved]
  - Hepatic function abnormal [Recovering/Resolving]
